FAERS Safety Report 4303536-7 (Version None)
Quarter: 2004Q1

REPORT INFORMATION
  Report Type: 
  Country: None (occurrence: None)
  Receive Date: 20040217
  Receipt Date: 20040202
  Transmission Date: 20041129
  Serious: Yes (Death)
  Sender: FDA-Public Use
  Company Number: 235168

PATIENT
  Age: 40 Year
  Sex: Female

DRUGS (1)
  1. NOVOSEVEN [Suspect]
     Indication: HAEMORRHAGE
     Dosage: INTRAVENOUS
     Route: 042

REACTIONS (2)
  - INTESTINAL FISTULA [None]
  - SEPSIS [None]
